FAERS Safety Report 9839409 (Version 1)
Quarter: 2014Q1

REPORT INFORMATION
  Report Type: Spontaneous
  Country: US (occurrence: US)
  Receive Date: 20140123
  Receipt Date: 20140123
  Transmission Date: 20141002
  Serious: Yes (Other)
  Sender: FDA-Public Use
  Company Number: US-AMGEN-USASP2014004494

PATIENT
  Age: 59 Year
  Sex: Female
  Weight: 64.4 kg

DRUGS (5)
  1. PROCRIT [Suspect]
     Indication: ANAEMIA
     Dosage: 10000 UNIT, TWICE A MONTH
     Route: 058
     Dates: start: 1997
  2. PROGRAS [Concomitant]
     Indication: PROPHYLAXIS AGAINST TRANSPLANT REJECTION
     Dosage: 2 MG,1 MG TWICE DAILY
     Route: 048
     Dates: start: 2008
  3. CELLCEPT                           /01275102/ [Concomitant]
     Indication: PROPHYLAXIS AGAINST TRANSPLANT REJECTION
     Dosage: 1000 MG, 500 MG TWICE DAILY
     Route: 048
     Dates: start: 2008
  4. PREDNISONE [Concomitant]
     Indication: PROPHYLAXIS AGAINST TRANSPLANT REJECTION
     Dosage: 10 MG, DAILY
     Route: 048
     Dates: start: 2008
  5. VITAMIN D                          /00107901/ [Concomitant]
     Indication: GENERAL PHYSICAL CONDITION
     Dosage: 1000 IU, DAILY
     Route: 048
     Dates: start: 2008

REACTIONS (2)
  - Renal impairment [Recovered/Resolved]
  - Nasopharyngitis [Not Recovered/Not Resolved]
